FAERS Safety Report 7981127-4 (Version None)
Quarter: 2011Q4

REPORT INFORMATION
  Report Type: 
  Country: None (occurrence: None)
  Receive Date: 20111212
  Receipt Date: 20111128
  Transmission Date: 20120403
  Serious: Yes (Death)
  Sender: FDA-Public Use
  Company Number: 2011BN000105

PATIENT
  Age: 17 Year
  Sex: Female

DRUGS (5)
  1. FLUDARABINE PHOSPHATE [Suspect]
     Indication: LEUKAEMIA
  2. THIOTEPA [Suspect]
     Indication: LEUKAEMIA
  3. IMMUNE GLOBULIN NOS [Concomitant]
  4. MELPHALAN HYDROCHLORIDE [Suspect]
     Indication: LEUKAEMIA
  5. ANTITHYMOCYTE [Concomitant]

REACTIONS (1)
  - GRAFT VERSUS HOST DISEASE [None]
